FAERS Safety Report 9888607 (Version 2)
Quarter: 2014Q1

REPORT INFORMATION
  Report Type: Report from Study
  Country: US (occurrence: US)
  Receive Date: 20140211
  Receipt Date: 20140224
  Transmission Date: 20141002
  Serious: Yes (Hospitalization)
  Sender: FDA-Public Use
  Company Number: US-ACTELION-A-US2014-94562

PATIENT
  Age: 46 Year
  Sex: Female

DRUGS (9)
  1. TRACLEER [Suspect]
     Indication: PULMONARY ARTERIAL HYPERTENSION
     Dosage: 125 MG, UNK
     Route: 048
     Dates: start: 201302
  2. ADCIRCA [Concomitant]
     Dosage: 20 MG, UNK
  3. TORSEMIDE [Concomitant]
     Dosage: 20 MG, BID
  4. PROAIR [Concomitant]
  5. KCL [Concomitant]
     Dosage: 20 MEQ, UNK
  6. ASA [Concomitant]
     Dosage: 81 MG, UNK
  7. CLOPIDOGREL [Concomitant]
     Dosage: 75 MG, UNK
  8. OMEPRAZOLE [Concomitant]
     Dosage: 20 MG, UNK
  9. SYMBICORT [Concomitant]
     Dosage: UNK PUFF, UNK

REACTIONS (1)
  - Atrial septal defect repair [Recovering/Resolving]
